FAERS Safety Report 6267513-1 (Version None)
Quarter: 2009Q3

REPORT INFORMATION
  Report Type: 
  Country: None (occurrence: None)
  Receive Date: 20090714
  Receipt Date: 20090709
  Transmission Date: 20100115
  Serious: Yes (Hospitalization)
  Sender: FDA-Public Use
  Company Number: US-MERCK-0805USA01476

PATIENT
  Age: 83 Year
  Sex: Female

DRUGS (1)
  1. FOSAMAX [Suspect]
     Indication: OSTEOPOROSIS
     Route: 048

REACTIONS (5)
  - DYSGEUSIA [None]
  - DYSPHAGIA [None]
  - FALL [None]
  - MUSCULOSKELETAL DISCOMFORT [None]
  - OSTEOPOROSIS [None]
